FAERS Safety Report 24035969 (Version 2)
Quarter: 2024Q3

REPORT INFORMATION
  Report Type: Spontaneous
  Country: US (occurrence: US)
  Receive Date: 20240701
  Receipt Date: 20240712
  Transmission Date: 20241017
  Serious: Yes (Death, Hospitalization)
  Sender: TEVA
  Company Number: US-TEVA-VS-3213879

PATIENT
  Age: 5 Day
  Sex: Male

DRUGS (1)
  1. ADENOSINE [Suspect]
     Active Substance: ADENOSINE
     Indication: Drug therapy
     Route: 042

REACTIONS (2)
  - Cardiac arrest neonatal [Fatal]
  - Multiple organ dysfunction syndrome [Fatal]
